FAERS Safety Report 13791037 (Version 2)
Quarter: 2017Q3

REPORT INFORMATION
  Report Type: Spontaneous
  Country: CH (occurrence: CH)
  Receive Date: 20170725
  Receipt Date: 20170823
  Transmission Date: 20171127
  Serious: Yes (Life-Threatening, Hospitalization)
  Sender: FDA-Public Use
  Company Number: CH-PFIZER INC-2017316826

PATIENT
  Age: 48 Year
  Sex: Female

DRUGS (7)
  1. TEMESTA /00273201/ [Concomitant]
     Active Substance: LORAZEPAM
     Dosage: 1 MG, 1X/DAY
     Route: 048
     Dates: start: 2002, end: 2017
  2. SEROQUEL XR [Suspect]
     Active Substance: QUETIAPINE FUMARATE
     Dosage: 200MG 1X/DAY
     Route: 048
     Dates: start: 2002, end: 2017
  3. INVEGA [Suspect]
     Active Substance: PALIPERIDONE
     Dosage: 3MG 1X/DAY
     Route: 048
     Dates: start: 2015, end: 2017
  4. SEROQUEL [Suspect]
     Active Substance: QUETIAPINE FUMARATE
     Dosage: 200MG 1X/DAY
     Route: 048
     Dates: start: 2002, end: 2017
  5. SERESTA [Concomitant]
     Active Substance: OXAZEPAM
     Dosage: UNK
     Dates: start: 2017
  6. EFFEXOR XR [Suspect]
     Active Substance: VENLAFAXINE HYDROCHLORIDE
     Dosage: 225MG 1X/DAY
     Route: 048
     Dates: start: 201701, end: 2017
  7. EFFEXOR XR [Suspect]
     Active Substance: VENLAFAXINE HYDROCHLORIDE
     Dosage: 150MG 1X/DAY (DOSAGE INCREASED FROM 150 TO 225 MG/DAY IN JANUARY 2017)
     Route: 048
     Dates: start: 2002, end: 201701

REACTIONS (2)
  - Pulmonary embolism [Recovered/Resolved]
  - Electrocardiogram QT prolonged [Recovering/Resolving]

NARRATIVE: CASE EVENT DATE: 2017
